FAERS Safety Report 4614806-7 (Version None)
Quarter: 2005Q1

REPORT INFORMATION
  Report Type: 
  Country: None (occurrence: None)
  Receive Date: 20050322
  Receipt Date: 20050316
  Transmission Date: 20050727
  Serious: Yes (Other)
  Sender: FDA-Public Use
  Company Number: PHBS2005JP03883

PATIENT

DRUGS (1)
  1. SANDOSTATIN [Suspect]
     Indication: CHYLOTHORAX
     Route: 058

REACTIONS (2)
  - ASCITES [None]
  - ILEUS PARALYTIC [None]
